FAERS Safety Report 13237661 (Version 1)
Quarter: 2017Q1

REPORT INFORMATION
  Report Type: Report from Study
  Country: US (occurrence: US)
  Receive Date: 20170215
  Receipt Date: 20170215
  Transmission Date: 20170428
  Serious: Yes (Death)
  Sender: FDA-Public Use
  Company Number: US-BIOGEN-2017BI00357146

PATIENT
  Age: 44 Year
  Sex: Male

DRUGS (3)
  1. TYSABRI [Suspect]
     Active Substance: NATALIZUMAB
     Indication: MULTIPLE SCLEROSIS
     Route: 042
     Dates: start: 20120927, end: 20130522
  2. TYSABRI [Suspect]
     Active Substance: NATALIZUMAB
     Route: 042
     Dates: start: 20140721, end: 20161228
  3. TECFIDERA [Suspect]
     Active Substance: DIMETHYL FUMARATE
     Indication: MULTIPLE SCLEROSIS
     Route: 048
     Dates: start: 20130716, end: 20130716

REACTIONS (1)
  - Death [Fatal]

NARRATIVE: CASE EVENT DATE: 201701
